FAERS Safety Report 10245687 (Version 3)
Quarter: 2017Q3

REPORT INFORMATION
  Report Type: Spontaneous
  Country: US (occurrence: US)
  Receive Date: 20140619
  Receipt Date: 20170926
  Transmission Date: 20171127
  Serious: Yes (Hospitalization, Other)
  Sender: FDA-Public Use
  Company Number: US-ROCHE-1418216

PATIENT
  Age: 52 Year
  Sex: Female

DRUGS (8)
  1. BUPROPION. [Concomitant]
     Active Substance: BUPROPION
  2. BONIVA [Suspect]
     Active Substance: IBANDRONATE SODIUM
     Indication: OSTEOPOROSIS
     Route: 048
     Dates: start: 20040414, end: 20120501
  3. ASPIRIN. [Concomitant]
     Active Substance: ASPIRIN
  4. BONIVA [Suspect]
     Active Substance: IBANDRONATE SODIUM
     Indication: OSTEOPENIA
  5. FOSAMAX [Suspect]
     Active Substance: ALENDRONATE SODIUM
     Indication: OSTEOPOROSIS
     Route: 048
     Dates: start: 20021011, end: 20040414
  6. VALSARTAN. [Concomitant]
     Active Substance: VALSARTAN
  7. FOSAMAX [Suspect]
     Active Substance: ALENDRONATE SODIUM
     Indication: OSTEOPENIA
  8. METOPROLOL. [Concomitant]
     Active Substance: METOPROLOL

REACTIONS (5)
  - Femur fracture [Unknown]
  - Anxiety [Unknown]
  - Femur fracture [Unknown]
  - Depression [Unknown]
  - Low turnover osteopathy [Unknown]

NARRATIVE: CASE EVENT DATE: 20120603
